FAERS Safety Report 9460891 (Version 1)
Quarter: 2013Q3

REPORT INFORMATION
  Report Type: Spontaneous
  Country: US (occurrence: US)
  Receive Date: 20130816
  Receipt Date: 20130816
  Transmission Date: 20140515
  Serious: Yes (Life-Threatening, Hospitalization, Disabling, Other)
  Sender: FDA-Public Use
  Company Number: US-009507513-1308USA004612

PATIENT
  Age: 95 Year
  Sex: Female

DRUGS (2)
  1. TICE BCG LIVE [Suspect]
     Indication: BLADDER CANCER
     Dosage: 6 WEEK CYCLE
     Route: 043
     Dates: start: 2009, end: 2009
  2. TICE BCG LIVE [Suspect]
     Dosage: 6 WEEK CYCLE
     Route: 043
     Dates: start: 2010, end: 2010

REACTIONS (2)
  - Hip fracture [Unknown]
  - Treatment failure [Unknown]
